FAERS Safety Report 19264564 (Version 1)
Quarter: 2021Q2

REPORT INFORMATION
  Report Type: Spontaneous
  Country: US (occurrence: US)
  Receive Date: 20210517
  Receipt Date: 20210517
  Transmission Date: 20210717
  Serious: No
  Sender: FDA-Public Use
  Company Number: None

PATIENT
  Age: 68 Year
  Sex: Female
  Weight: 89.36 kg

DRUGS (4)
  1. ATORVASTATIN [Concomitant]
     Active Substance: ATORVASTATIN
  2. CENTRUM [Concomitant]
     Active Substance: VITAMINS
  3. DEFINITY [Suspect]
     Active Substance: PERFLUTREN
     Indication: X-RAY WITH CONTRAST
     Route: 040
     Dates: start: 20210311, end: 20210311
  4. CHLORTHALADONE [Concomitant]

REACTIONS (8)
  - Headache [None]
  - Tremor [None]
  - Fatigue [None]
  - Muscle spasms [None]
  - Back pain [None]
  - Arthralgia [None]
  - Dyspnoea [None]
  - Heart rate increased [None]

NARRATIVE: CASE EVENT DATE: 20210311
